FAERS Safety Report 9563562 (Version 1)
Quarter: 2013Q1

REPORT INFORMATION
  Report Type: Spontaneous
  Country: US (occurrence: None)
  Receive Date: 20121227
  Receipt Date: 20121227
  Transmission Date: 20140127
  Serious: Yes (Hospitalization)
  Sender: FDA-Public Use
  Company Number: PHEH2011US08295

PATIENT
  Age: 69 Year
  Sex: Female

DRUGS (6)
  1. EXJADE [Suspect]
     Indication: MYELODYSPLASTIC SYNDROME
     Route: 048
     Dates: start: 20110614
  2. VIDAZA (AZACITIDINE) [Concomitant]
  3. SYNTHROID (LEVOTHYROXINE SODIUM) [Concomitant]
  4. LEVAQUIN (LEVOFLOXACIN) [Concomitant]
  5. PRILOSEC [Concomitant]
  6. XALATAN (LATANOPROST) [Concomitant]

REACTIONS (2)
  - Blast cell crisis [None]
  - Liver function test abnormal [None]
